FAERS Safety Report 13368801 (Version 1)
Quarter: 2017Q1

REPORT INFORMATION
  Report Type: Spontaneous
  Country: US (occurrence: US)
  Receive Date: 20170324
  Receipt Date: 20170324
  Transmission Date: 20170429
  Serious: No
  Sender: FDA-Public Use
  Company Number: US-SUN PHARMACEUTICAL INDUSTRIES LTD-2017SUN00038

PATIENT
  Age: 17 Year
  Sex: Female

DRUGS (4)
  1. TECHNETIUM TC-99M MEBROFENIN KIT [Suspect]
     Active Substance: TECHNETIUM TC-99M MEBROFENIN
     Indication: NAUSEA
  2. TECHNETIUM TC-99M MEBROFENIN KIT [Suspect]
     Active Substance: TECHNETIUM TC-99M MEBROFENIN
     Indication: VOMITING PSYCHOGENIC
     Dosage: 4.8 MCI, OD
     Route: 042
     Dates: start: 20170123, end: 20170123
  3. KINEVAC [Suspect]
     Active Substance: SINCALIDE
     Indication: ABDOMINAL TENDERNESS
     Dosage: UNK, OD
     Route: 042
     Dates: start: 20170123, end: 20170123
  4. DEXLANSOPRAZOLE [Concomitant]
     Active Substance: DEXLANSOPRAZOLE
     Indication: PRODUCT USED FOR UNKNOWN INDICATION
     Dosage: 60 MG, DAILY
     Route: 065

REACTIONS (5)
  - Throat tightness [Recovering/Resolving]
  - Pruritus [Recovering/Resolving]
  - Erythema [Recovering/Resolving]
  - Urticaria [Recovering/Resolving]
  - Throat irritation [Recovering/Resolving]
